FAERS Safety Report 26175100 (Version 1)
Quarter: 2025Q4

REPORT INFORMATION
  Report Type: Spontaneous
  Country: EU (occurrence: EU)
  Receive Date: 20251218
  Receipt Date: 20251218
  Transmission Date: 20260118
  Serious: Yes (Other)
  Sender: TEVA
  Company Number: None

PATIENT
  Age: 57 Year
  Sex: Male

DRUGS (3)
  1. AJOVY [Suspect]
     Active Substance: FREMANEZUMAB-VFRM
     Indication: Product used for unknown indication
     Route: 065
     Dates: start: 20241025
  2. BETAMETASONE LFM [Concomitant]
     Indication: Product used for unknown indication
     Dosage: BETAMETASONE L.F.M.;4 MG/DOSE PER LUMBOSCIATICA
  3. DICLOFENAC DOC [Concomitant]
     Indication: Product used for unknown indication

REACTIONS (1)
  - Deep vein thrombosis [Not Recovered/Not Resolved]

NARRATIVE: CASE EVENT DATE: 20251030
